FAERS Safety Report 9941236 (Version 1)
Quarter: 2014Q1

REPORT INFORMATION
  Report Type: Report from Study
  Country: US (occurrence: US)
  Receive Date: 20140303
  Receipt Date: 20140303
  Transmission Date: 20141002
  Serious: No
  Sender: FDA-Public Use
  Company Number: US-ABBVIE-13P-163-1042058-00

PATIENT
  Age: 19 Year
  Sex: Female
  Weight: 54.03 kg

DRUGS (5)
  1. HUMIRA [Suspect]
     Indication: CROHN^S DISEASE
     Route: 058
     Dates: start: 20130127, end: 20130127
  2. HUMIRA [Suspect]
     Route: 058
  3. UNKNOWN MEDICATION [Concomitant]
     Indication: FISTULA
  4. UNKNOWN MEDICATION [Concomitant]
     Indication: ABDOMINAL PAIN UPPER
  5. UNKNOWN MEDICATION [Concomitant]
     Indication: GASTROOESOPHAGEAL REFLUX DISEASE

REACTIONS (3)
  - Injection site pain [Recovered/Resolved]
  - Injection site haemorrhage [Recovered/Resolved]
  - Injection site erythema [Recovering/Resolving]
